FAERS Safety Report 7940921-6 (Version None)
Quarter: 2011Q4

REPORT INFORMATION
  Report Type: 
  Country: None (occurrence: None)
  Receive Date: 20111128
  Receipt Date: 20111115
  Transmission Date: 20120403
  Serious: No
  Sender: FDA-Public Use
  Company Number: US-B.I. PHARMACEUTICALS,INC./RIDGEFIELD-2011-BP-26364BP

PATIENT
  Sex: Male

DRUGS (11)
  1. VITAMIN B-12 [Concomitant]
     Indication: MEDICAL DIET
  2. PRADAXA [Suspect]
     Indication: ATRIAL FIBRILLATION
     Dosage: 300 MG
     Route: 048
     Dates: start: 20110701
  3. HYDROCHLOROTHIAZIDE [Concomitant]
     Indication: HYPERTENSION
  4. VITAMIN D [Concomitant]
     Indication: MEDICAL DIET
  5. TRICOR [Concomitant]
     Indication: HYPERLIPIDAEMIA
  6. ACETAMINOPHEN [Concomitant]
     Indication: PAIN
  7. METOPROLOL TARTRATE [Concomitant]
     Indication: ATRIAL FIBRILLATION
  8. ALPRAZOLAM [Concomitant]
     Indication: ANXIETY
  9. FINASTERIDE [Concomitant]
     Indication: PROSTATOMEGALY
  10. LANSOPRAZOLE [Concomitant]
     Indication: ABDOMINAL DISCOMFORT
  11. COLACE [Concomitant]
     Indication: CONSTIPATION

REACTIONS (1)
  - ARTHRALGIA [None]
